FAERS Safety Report 23860059 (Version 1)
Quarter: 2024Q2

REPORT INFORMATION
  Report Type: Spontaneous
  Country: US (occurrence: US)
  Receive Date: 20240515
  Receipt Date: 20240515
  Transmission Date: 20240716
  Serious: No
  Sender: FDA-Public Use
  Company Number: US-SA-SAC20240511000296

PATIENT
  Sex: Male

DRUGS (2)
  1. DUPIXENT [Suspect]
     Active Substance: DUPILUMAB
     Indication: Dermatitis allergic
     Dosage: 300 MG, QOW
     Route: 058
     Dates: start: 20210210
  2. CICLOPIROX [Concomitant]
     Active Substance: CICLOPIROX\TOCOPHEROL
     Dosage: UNK

REACTIONS (2)
  - Drug ineffective [Unknown]
  - Product dose omission in error [Unknown]
